FAERS Safety Report 21634114 (Version 1)
Quarter: 2022Q4

REPORT INFORMATION
  Report Type: Spontaneous
  Country: NL (occurrence: NL)
  Receive Date: 20221123
  Receipt Date: 20221123
  Transmission Date: 20230113
  Serious: Yes (Hospitalization)
  Sender: FDA-Public Use
  Company Number: None

PATIENT
  Sex: Female
  Weight: 84 kg

DRUGS (1)
  1. TRANEXAMIC ACID [Suspect]
     Active Substance: TRANEXAMIC ACID
     Indication: Von Willebrand^s disease
     Dosage: 4X PER DAY 2 PIECES
     Route: 065
     Dates: start: 20220909

REACTIONS (1)
  - Urinary retention [Recovered/Resolved]
